FAERS Safety Report 4744333-8 (Version None)
Quarter: 2005Q3

REPORT INFORMATION
  Report Type: 
  Country: None (occurrence: None)
  Receive Date: 20050811
  Receipt Date: 20050811
  Transmission Date: 20060218
  Serious: Yes (Disabling)
  Sender: FDA-Public Use
  Company Number: None

PATIENT

DRUGS (1)
  1. LIPITOR [Suspect]
     Indication: BLOOD CHOLESTEROL INCREASED
     Dosage: ONCE A DAY    PILL
     Route: 048
     Dates: start: 20050103, end: 20050509

REACTIONS (3)
  - DYSSTASIA [None]
  - MUSCLE DISORDER [None]
  - MYALGIA [None]
